FAERS Safety Report 8900531 (Version 1)
Quarter: 2012Q4

REPORT INFORMATION
  Report Type: 
  Country: ES (occurrence: ES)
  Receive Date: 20121109
  Receipt Date: 20121109
  Transmission Date: 20130627
  Serious: Yes (Hospitalization)
  Sender: FDA-Public Use
  Company Number: ES-ELI_LILLY_AND_COMPANY-ES201210009351

PATIENT
  Age: 74 Year
  Sex: Female

DRUGS (4)
  1. FORSTEO [Suspect]
     Indication: OSTEOPOROSIS
     Dosage: 20 ug, qd
     Route: 058
     Dates: start: 20121001
  2. OMEPRAZOL [Concomitant]
     Indication: GASTRITIS PROPHYLAXIS
     Dosage: 20 mg, qd
     Route: 048
  3. NAVIXEN [Concomitant]
     Indication: HYPERTENSION
     Dosage: 600 mg, qd
     Route: 048
  4. IBERCAL D [Concomitant]
     Indication: OSTEOPOROSIS
     Dosage: 1 DF, qd
     Route: 048

REACTIONS (3)
  - Cholelithiasis [Not Recovered/Not Resolved]
  - Diarrhoea [Recovering/Resolving]
  - Vomiting [Recovering/Resolving]
